FAERS Safety Report 5220778-7 (Version None)
Quarter: 2007Q1

REPORT INFORMATION
  Report Type: 
  Country: None (occurrence: None)
  Receive Date: 20070123
  Receipt Date: 20070112
  Transmission Date: 20070707
  Serious: Yes (Life-Threatening, Other)
  Sender: FDA-Public Use
  Company Number: CHNY2006DE03460

PATIENT
  Age: 72 Year
  Sex: Male
  Weight: 69 kg

DRUGS (3)
  1. TAVEGYL (NCH) (CLEMASTINE HYDROGEN FUMARATE) AMPOULE [Suspect]
     Indication: PROPHYLACTIC CHEMOTHERAPY
     Dosage: 2.68 MG, ONCE/SINGLE, INTRAVENOUS
     Route: 042
     Dates: start: 20061204, end: 20061204
  2. SOLU-DECORTIN-H (PREDNISOLONE SODIUM SUCCINATE) [Suspect]
     Indication: PROPHYLACTIC CHEMOTHERAPY
     Dosage: INTRAVENOUS
     Route: 042
     Dates: start: 20061204, end: 20061204
  3. PACLITAXEL [Concomitant]

REACTIONS (7)
  - ENZYME ABNORMALITY [None]
  - HOT FLUSH [None]
  - LOSS OF CONSCIOUSNESS [None]
  - NAUSEA [None]
  - PUPIL FIXED [None]
  - RESPIRATORY ARREST [None]
  - RESPIRATORY FAILURE [None]
